FAERS Safety Report 5175263-8 (Version None)
Quarter: 2006Q4

REPORT INFORMATION
  Report Type: 
  Country: None (occurrence: None)
  Receive Date: 20061211
  Receipt Date: 20061211
  Transmission Date: 20070319
  Serious: No
  Sender: FDA-Public Use
  Company Number: None

PATIENT
  Age: 50 Year
  Sex: Female
  Weight: 35.3806 kg

DRUGS (1)
  1. ALBUTEROL [Suspect]
     Dosage: 0.083% Q 6-8 H
     Dates: start: 20050927

REACTIONS (4)
  - HYPERHIDROSIS [None]
  - LETHARGY [None]
  - PHARMACEUTICAL PRODUCT COMPLAINT [None]
  - TACHYCARDIA [None]
